FAERS Safety Report 5289400-8 (Version None)
Quarter: 2007Q2

REPORT INFORMATION
  Report Type: 
  Country: None (occurrence: None)
  Receive Date: 20070406
  Receipt Date: 20070402
  Transmission Date: 20071010
  Serious: Yes (Death, Life-Threatening, Hospitalization, Other)
  Sender: FDA-Public Use
  Company Number: PHBS2007JP03436

PATIENT
  Age: 41 Year
  Sex: Male
  Weight: 60 kg

DRUGS (6)
  1. VOLTAREN [Suspect]
     Indication: PYREXIA
     Dosage: 75 MG/DAY
     Route: 054
     Dates: start: 20070210, end: 20070212
  2. ADONA [Concomitant]
     Indication: BRAIN STEM HAEMORRHAGE
     Dates: start: 20070210, end: 20070212
  3. TRANSAMIN [Concomitant]
     Indication: BRAIN STEM HAEMORRHAGE
     Dates: start: 20070210, end: 20070212
  4. PRIMPERAN INJ [Concomitant]
     Indication: VOMITING
     Dosage: 2 DF/DAY
     Dates: start: 20070210, end: 20070212
  5. GASTER [Concomitant]
     Indication: UPPER GASTROINTESTINAL HAEMORRHAGE
     Dates: start: 20070210, end: 20070212
  6. GLYCEOL [Concomitant]
     Indication: BRAIN OEDEMA
     Dosage: 400 ML/DAY
     Dates: start: 20070211, end: 20070212

REACTIONS (23)
  - ALANINE AMINOTRANSFERASE INCREASED [None]
  - ASPARTATE AMINOTRANSFERASE INCREASED [None]
  - BLOOD CALCIUM INCREASED [None]
  - BLOOD CREATINE PHOSPHOKINASE INCREASED [None]
  - BLOOD CREATININE INCREASED [None]
  - BLOOD LACTATE DEHYDROGENASE INCREASED [None]
  - BLOOD PRESSURE DECREASED [None]
  - BLOOD UREA INCREASED [None]
  - BRAIN DEATH [None]
  - BRAIN OEDEMA [None]
  - BRAIN STEM HAEMORRHAGE [None]
  - BRAIN STEM SYNDROME [None]
  - C-REACTIVE PROTEIN INCREASED [None]
  - DEHYDRATION [None]
  - DEPENDENCE ON RESPIRATOR [None]
  - DYSPNOEA [None]
  - HAEMODIALYSIS [None]
  - MYDRIASIS [None]
  - PLATELET COUNT DECREASED [None]
  - PYREXIA [None]
  - RHABDOMYOLYSIS [None]
  - URINE OUTPUT DECREASED [None]
  - WHITE BLOOD CELL COUNT INCREASED [None]
